FAERS Safety Report 4892121-4 (Version None)
Quarter: 2006Q1

REPORT INFORMATION
  Report Type: 
  Country: None (occurrence: None)
  Receive Date: 20060123
  Receipt Date: 20060106
  Transmission Date: 20060701
  Serious: Yes (Hospitalization)
  Sender: FDA-Public Use
  Company Number: DSA-27641-2006

PATIENT
  Age: 17 Year
  Sex: Female

DRUGS (4)
  1. TEMESTA [Suspect]
     Dosage: DF ONCE, PO
     Route: 048
     Dates: start: 20051027, end: 20051027
  2. FLUCTINE [Suspect]
     Indication: EATING DISORDER
     Dosage: DF Q DAY, PO
     Route: 048
     Dates: start: 20051012, end: 20051027
  3. ZYPREXA [Suspect]
     Dosage: 12.5 MG ONCE, PO
     Route: 048
     Dates: start: 20051027, end: 20051027
  4. ZYPREXA [Suspect]
     Indication: EATING DISORDER
     Dosage: 2.5 MG Q DAY, PO
     Route: 048

REACTIONS (9)
  - BALANCE DISORDER [None]
  - DEPRESSED LEVEL OF CONSCIOUSNESS [None]
  - DISORIENTATION [None]
  - DRY MOUTH [None]
  - DYSARTHRIA [None]
  - DYSKINESIA [None]
  - INTENTIONAL OVERDOSE [None]
  - MYDRIASIS [None]
  - URINARY INCONTINENCE [None]
